FAERS Safety Report 9116862 (Version 2)
Quarter: 2013Q1

REPORT INFORMATION
  Report Type: Report from Study
  Country: CA (occurrence: CA)
  Receive Date: 20130225
  Receipt Date: 20130314
  Transmission Date: 20140127
  Serious: Yes (Hospitalization)
  Sender: FDA-Public Use
  Company Number: PHHY2013CA017715

PATIENT
  Sex: Male

DRUGS (6)
  1. CLOZARIL [Suspect]
     Indication: SCHIZOPHRENIA
     Dosage: 400 MG, DAILY
     Route: 048
  2. CLOZARIL [Suspect]
     Dosage: 150 MG, DAILY
     Route: 048
     Dates: start: 2012
  3. CLOZARIL [Suspect]
     Dosage: 400 MG, DAILY
     Route: 048
     Dates: start: 201212
  4. ABILIFY [Concomitant]
     Dosage: UNK UKN, UNK
  5. ZYPREXA [Concomitant]
     Dosage: 20 MG, UNK
     Dates: start: 201212
  6. RIVOTRIL [Concomitant]
     Dosage: 1 MG, UNK

REACTIONS (1)
  - Psychiatric decompensation [Recovered/Resolved with Sequelae]
